FAERS Safety Report 25513190 (Version 1)
Quarter: 2025Q3

REPORT INFORMATION
  Report Type: Spontaneous
  Country: US (occurrence: US)
  Receive Date: 20250703
  Receipt Date: 20250703
  Transmission Date: 20251021
  Serious: No
  Sender: RADIUS PHARM
  Company Number: US-RADIUS HEALTH INC.-2024US008094

PATIENT
  Age: 59 Year
  Sex: Female

DRUGS (3)
  1. TYMLOS [Suspect]
     Active Substance: ABALOPARATIDE
     Indication: Osteoporosis postmenopausal
     Route: 065
  2. CALCIUM [Concomitant]
     Active Substance: CALCIUM
     Indication: Product used for unknown indication
     Route: 065
  3. VITAMIN D NOS [Concomitant]
     Active Substance: CHOLECALCIFEROL\ERGOCALCIFEROL
     Indication: Product used for unknown indication
     Route: 065

REACTIONS (4)
  - Urinary tract infection [Not Recovered/Not Resolved]
  - Product dose omission issue [Unknown]
  - Malaise [Unknown]
  - Fatigue [Unknown]

NARRATIVE: CASE EVENT DATE: 20241002
